FAERS Safety Report 9455604 (Version 1)
Quarter: 2013Q3

REPORT INFORMATION
  Report Type: Spontaneous
  Country: DE (occurrence: None)
  Receive Date: 20130808
  Receipt Date: 20130808
  Transmission Date: 20140515
  Serious: Yes (Death, Hospitalization)
  Sender: FDA-Public Use
  Company Number: 1307-983

PATIENT
  Age: 79 Year
  Sex: Female

DRUGS (1)
  1. EYLEA (AFLIBERCEPT)(INJECTION)AFLIBERCEPT) [Suspect]
     Indication: AGE-RELATED MACULAR DEGENERATION
     Route: 031
     Dates: start: 201212, end: 201303

REACTIONS (3)
  - Pancreatic carcinoma [None]
  - Gastric ulcer [None]
  - Visual acuity reduced [None]
